FAERS Safety Report 6183567-5 (Version None)
Quarter: 2009Q2

REPORT INFORMATION
  Report Type: 
  Country: None (occurrence: None)
  Receive Date: 20090508
  Receipt Date: 20090427
  Transmission Date: 20091009
  Serious: Yes (Hospitalization)
  Sender: FDA-Public Use
  Company Number: FR-CELGENEUS-056-C5013-08110273

PATIENT
  Sex: Male

DRUGS (10)
  1. CC-5013 [Suspect]
     Indication: MULTIPLE MYELOMA
     Route: 048
     Dates: start: 20081030
  2. DEXAMETHASONE [Suspect]
     Indication: MULTIPLE MYELOMA
     Route: 048
     Dates: start: 20081030
  3. TEMERIT [Concomitant]
     Route: 048
  4. SKENAN [Concomitant]
     Indication: BONE PAIN
     Route: 048
     Dates: start: 20081018
  5. CORVASAL [Concomitant]
     Indication: ANGINA PECTORIS
     Route: 048
  6. KARDEGIC [Concomitant]
     Indication: THROMBOSIS PROPHYLAXIS
     Route: 048
  7. PRAVASTATIN [Concomitant]
     Route: 048
  8. TAREG [Concomitant]
     Indication: HYPERTENSION
     Route: 048
  9. JOSIR [Concomitant]
     Route: 048
  10. ENSURE [Concomitant]
     Route: 048

REACTIONS (2)
  - FAECALOMA [None]
  - URINARY RETENTION [None]
